FAERS Safety Report 23719799 (Version 1)
Quarter: 2024Q2

REPORT INFORMATION
  Report Type: Spontaneous
  Country: US (occurrence: None)
  Receive Date: 20240408
  Receipt Date: 20240408
  Transmission Date: 20240715
  Serious: No
  Sender: FDA-Public Use
  Company Number: None

PATIENT

DRUGS (2)
  1. BEYFORTUS [Suspect]
     Active Substance: NIRSEVIMAB-ALIP
     Route: 058
  2. BEYFORTUS [Suspect]
     Active Substance: NIRSEVIMAB-ALIP
     Route: 058

REACTIONS (3)
  - Product selection error [None]
  - Incorrect dose administered by device [None]
  - Wrong technique in product usage process [None]
